FAERS Safety Report 9156075 (Version 3)
Quarter: 2013Q2

REPORT INFORMATION
  Report Type: Report from Study
  Country: US (occurrence: US)
  Receive Date: 20130311
  Receipt Date: 20130408
  Transmission Date: 20140414
  Serious: Yes (Other)
  Sender: FDA-Public Use
  Company Number: US-ABBOTT-13P-163-1058994-00

PATIENT
  Age: 74 Year
  Sex: Female
  Weight: 87.62 kg

DRUGS (15)
  1. HUMIRA [Suspect]
     Indication: CROHN^S DISEASE
     Dates: start: 20121214
  2. DOXEPIN [Concomitant]
     Indication: DEPRESSION
     Dosage: EVERY BEDTIME
  3. NEXIUM [Concomitant]
     Indication: GASTROINTESTINAL DISORDER
  4. FOLIC ACID [Concomitant]
     Indication: GASTROINTESTINAL DISORDER
  5. TYLENOL [Concomitant]
     Indication: PAIN
  6. MVI [Concomitant]
     Indication: PRODUCT USED FOR UNKNOWN INDICATION
     Dosage: DAILY
  7. CALCIUM WITH D [Concomitant]
     Indication: PRODUCT USED FOR UNKNOWN INDICATION
  8. APRESOLINE [Concomitant]
     Indication: GASTROINTESTINAL DISORDER
     Dosage: EVERY BEDTIME
  9. LASIX [Concomitant]
     Indication: CARDIAC DISORDER
  10. COZAAR [Concomitant]
     Indication: CARDIAC DISORDER
  11. KCL [Concomitant]
     Indication: PRODUCT USED FOR UNKNOWN INDICATION
  12. COREG [Concomitant]
     Indication: CARDIAC DISORDER
  13. VITAMIN B 12 [Concomitant]
     Indication: BLOOD IRON DECREASED
     Route: 030
  14. IRON [Concomitant]
     Indication: PRODUCT USED FOR UNKNOWN INDICATION
     Route: 042
  15. IMURAN [Concomitant]
     Indication: PRODUCT USED FOR UNKNOWN INDICATION
     Dates: end: 20130126

REACTIONS (11)
  - Ligament sprain [Recovering/Resolving]
  - Anaemia [Unknown]
  - Fall [Recovering/Resolving]
  - Foot fracture [Recovering/Resolving]
  - Hepatic enzyme increased [Recovered/Resolved]
  - Rhinorrhoea [Unknown]
  - Increased upper airway secretion [Unknown]
  - Productive cough [Unknown]
  - Sinus disorder [Unknown]
  - Alanine aminotransferase increased [Recovered/Resolved]
  - Hepatic enzyme increased [Recovered/Resolved]
